FAERS Safety Report 8954755 (Version 3)
Quarter: 2013Q2

REPORT INFORMATION
  Report Type: Spontaneous
  Country: US (occurrence: US)
  Receive Date: 20121207
  Receipt Date: 20130514
  Transmission Date: 20140414
  Serious: No
  Sender: FDA-Public Use
  Company Number: US-ASTRAZENECA-2012SE88513

PATIENT
  Age: 68 Year
  Sex: Female

DRUGS (3)
  1. CAPRELSA [Suspect]
     Indication: MEDULLARY THYROID CANCER
     Route: 048
     Dates: start: 20121109
  2. CAPRELSA [Suspect]
     Indication: MEDULLARY THYROID CANCER
     Route: 048
  3. SYNTHROID [Concomitant]

REACTIONS (6)
  - Chest discomfort [Unknown]
  - Constipation [Unknown]
  - Cough [Unknown]
  - White blood cell count decreased [Unknown]
  - Rash [Unknown]
  - Diarrhoea [Unknown]
